FAERS Safety Report 7785441-7 (Version None)
Quarter: 2011Q3

REPORT INFORMATION
  Report Type: 
  Country: None (occurrence: None)
  Receive Date: 20110929
  Receipt Date: 20110927
  Transmission Date: 20111222
  Serious: Yes (Death, Other)
  Sender: FDA-Public Use
  Company Number: PHHY2010IE01065

PATIENT
  Sex: Female

DRUGS (11)
  1. CLOZAPINE [Suspect]
     Indication: SCHIZOPHRENIA
     Dosage: 650 MG, QD
     Route: 048
     Dates: start: 20060214
  2. KWELLS [Concomitant]
  3. FLURAZEPAM [Concomitant]
     Dosage: 15 MG, NOCTE
  4. KEFLEX [Concomitant]
     Dosage: 250 MG, QID
     Dates: start: 20091208, end: 20091215
  5. CANESTEN-HC [Concomitant]
     Route: 061
  6. PANTOPRAZOLE [Concomitant]
     Dosage: 40 MG, UNK
     Route: 048
  7. ERYTHROMYCIN [Concomitant]
     Dosage: QDS
     Dates: end: 20091230
  8. ATENOLOL [Concomitant]
     Dosage: 25 MG, UNK
     Route: 048
  9. SOLIFENACIN SUCCINATE [Concomitant]
     Dosage: 10 MG, UNK
  10. PREDNISOLONE [Concomitant]
     Dosage: 20 MG, QD
     Dates: start: 20091216, end: 20091221
  11. ALBUTEROL [Concomitant]

REACTIONS (4)
  - ASPIRATION [None]
  - ANTIPSYCHOTIC DRUG LEVEL ABOVE THERAPEUTIC [None]
  - RESPIRATORY TRACT INFECTION [None]
  - MALAISE [None]
